FAERS Safety Report 5832694-8 (Version None)
Quarter: 2008Q3

REPORT INFORMATION
  Report Type: 
  Country: None (occurrence: None)
  Receive Date: 20080804
  Receipt Date: 20080804
  Transmission Date: 20090109
  Serious: Yes (Death, Hospitalization)
  Sender: FDA-Public Use
  Company Number: PHEH1999US04953

PATIENT
  Sex: Male
  Weight: 79.5 kg

DRUGS (13)
  1. NEORAL [Suspect]
     Indication: HEART TRANSPLANT
  2. AZATHIOPRINE COMP-AZA+ [Suspect]
     Indication: HEART TRANSPLANT
     Dosage: UNK
     Route: 048
     Dates: start: 19990930, end: 19991030
  3. ZOSYN [Suspect]
  4. FOSAMAX [Concomitant]
  5. PREDNISONE [Concomitant]
  6. PRAVACHOL [Concomitant]
  7. LASIX [Concomitant]
  8. BACTRIM [Concomitant]
  9. AMLODIPINE [Concomitant]
  10. ACYCLOVIR [Concomitant]
  11. LEUCOVORIN CALCIUM [Concomitant]
  12. ASPIRIN [Concomitant]
  13. PYRIMETHAMINE TAB [Concomitant]

REACTIONS (8)
  - ANAEMIA [None]
  - ATRIAL FIBRILLATION [None]
  - BACTERIAL INFECTION [None]
  - CONVULSION [None]
  - OESOPHAGEAL PERFORATION [None]
  - PLEURAL EFFUSION [None]
  - PNEUMOTHORAX [None]
  - TRANSPLANT REJECTION [None]
